FAERS Safety Report 20716355 (Version 2)
Quarter: 2022Q2

REPORT INFORMATION
  Report Type: Spontaneous
  Country: NL (occurrence: NL)
  Receive Date: 20220416
  Receipt Date: 20220422
  Transmission Date: 20220721
  Serious: Yes (Other)
  Sender: FDA-Public Use
  Company Number: NL-AUROBINDO-AUR-APL-2022-012419

PATIENT
  Age: 53 Year
  Sex: Female

DRUGS (9)
  1. FENTANYL TRANSDERMAL SYSTEM [Suspect]
     Active Substance: FENTANYL
     Indication: Pain
     Dosage: UNK
     Route: 065
  2. OXYCODONE [Suspect]
     Active Substance: OXYCODONE
     Indication: Pain
     Dosage: 350 MILLIGRAM, ONCE A DAY
     Route: 065
  3. OXYCODONE [Suspect]
     Active Substance: OXYCODONE
     Dosage: 130 MILLIGRAM
  4. PREDNISONE [Suspect]
     Active Substance: PREDNISONE
     Indication: Asthma
     Dosage: UNK
     Route: 065
  5. TRAMADOL [Suspect]
     Active Substance: TRAMADOL
     Indication: Pain
     Dosage: UNK
     Route: 065
  6. HYDROMORPHONE [Suspect]
     Active Substance: HYDROMORPHONE
     Indication: Pain
     Dosage: UNK
     Route: 065
  7. HYDROMORPHONE HYDROCHLORIDE [Concomitant]
     Active Substance: HYDROMORPHONE HYDROCHLORIDE
     Indication: Pain
     Dosage: UNK
     Route: 065
  8. CLONIDINE [Concomitant]
     Active Substance: CLONIDINE
     Indication: Withdrawal syndrome
     Dosage: UNK
     Route: 065
  9. TEMAZEPAM [Concomitant]
     Active Substance: TEMAZEPAM
     Indication: Somnolence
     Dosage: UNK
     Route: 065

REACTIONS (12)
  - Feeling abnormal [Unknown]
  - Drug dependence [Unknown]
  - Osteonecrosis [Unknown]
  - Withdrawal syndrome [Unknown]
  - Nightmare [Unknown]
  - Restlessness [Unknown]
  - Pruritus [Unknown]
  - Headache [Unknown]
  - Nausea [Unknown]
  - Electric shock [Unknown]
  - Insomnia [Unknown]
  - Hyperhidrosis [Unknown]
